FAERS Safety Report 20363966 (Version 1)
Quarter: 2022Q1

REPORT INFORMATION
  Report Type: Spontaneous
  Country: CA (occurrence: CA)
  Receive Date: 20220121
  Receipt Date: 20220121
  Transmission Date: 20220423
  Serious: Yes (Other)
  Sender: FDA-Public Use
  Company Number: CA-PFIZER INC-202200071949

PATIENT
  Age: 56 Year
  Sex: Female

DRUGS (5)
  1. XELJANZ XR [Suspect]
     Active Substance: TOFACITINIB CITRATE
     Indication: Rheumatoid arthritis
     Dosage: 11 MG, 1X/DAY
     Route: 048
     Dates: start: 20200818
  2. IBUPROFEN [Suspect]
     Active Substance: IBUPROFEN
  3. CELEBREX [Concomitant]
     Active Substance: CELECOXIB
     Dosage: 1 DF, DOSAGE INFORMATION UNAVAILABLE
     Route: 065
  4. METHOTREXATE [Concomitant]
     Active Substance: METHOTREXATE
     Dosage: 1 DF, 1 PER WEEK, (DOSAGE INFORMATION UNAVAILABLEFREQUENCY: EVERY THURSDAY )
     Route: 065
  5. RAMIPRIL [Concomitant]
     Active Substance: RAMIPRIL
     Dosage: 5 MG, DOSING FREQUENCY UNAVAILABLE
     Route: 065

REACTIONS (2)
  - Lower limb fracture [Not Recovered/Not Resolved]
  - Dyspepsia [Not Recovered/Not Resolved]

NARRATIVE: CASE EVENT DATE: 20210101
